FAERS Safety Report 5392546-7 (Version None)
Quarter: 2007Q3

REPORT INFORMATION
  Report Type: 
  Country: None (occurrence: None)
  Receive Date: 20070720
  Receipt Date: 20070713
  Transmission Date: 20080115
  Serious: Yes (Other)
  Sender: FDA-Public Use
  Company Number: JP-BOEHRINGER INGELHEIM PHARMACEUTICALS, INC.-2007-DE-04122GD

PATIENT
  Age: 80 Year
  Sex: Male

DRUGS (2)
  1. ASPIRIN [Suspect]
  2. DIPYRIDAMOLE [Suspect]

REACTIONS (1)
  - RECTAL ULCER HAEMORRHAGE [None]
